FAERS Safety Report 15615602 (Version 1)
Quarter: 2018Q4

REPORT INFORMATION
  Report Type: Spontaneous
  Country: US (occurrence: US)
  Receive Date: 20181114
  Receipt Date: 20181114
  Transmission Date: 20190205
  Serious: No
  Sender: FDA-Public Use
  Company Number: US-TEVA-818249ACC

PATIENT
  Sex: Female

DRUGS (1)
  1. ESTRADIOL. [Suspect]
     Active Substance: ESTRADIOL
     Indication: HYPOGONADISM

REACTIONS (5)
  - Blood follicle stimulating hormone increased [Unknown]
  - Blood luteinising hormone abnormal [Unknown]
  - Drug ineffective [Unknown]
  - Product solubility abnormal [Unknown]
  - Oestradiol decreased [Unknown]
